FAERS Safety Report 22962472 (Version 2)
Quarter: 2023Q4

REPORT INFORMATION
  Report Type: Spontaneous
  Country: IT (occurrence: None)
  Receive Date: 20230920
  Receipt Date: 20231103
  Transmission Date: 20240110
  Serious: Yes (Hospitalization, Other)
  Sender: FDA-Public Use
  Company Number: 2023A208364

PATIENT
  Age: 62 Year
  Sex: Female

DRUGS (3)
  1. QUETIAPINE FUMARATE [Suspect]
     Active Substance: QUETIAPINE FUMARATE
     Indication: Mania
     Dosage: 250.0MG ONCE/SINGLE ADMINISTRATION
     Route: 048
     Dates: start: 20230409, end: 20230409
  2. XANAX [Concomitant]
     Active Substance: ALPRAZOLAM
     Indication: Anxiety
     Dosage: 0.5MG UNKNOWN
     Route: 048
  3. CYMBALTA [Concomitant]
     Active Substance: DULOXETINE HYDROCHLORIDE
     Indication: Major depression
     Dosage: 60.0MG UNKNOWN
     Route: 048

REACTIONS (4)
  - Depressed level of consciousness [Recovering/Resolving]
  - Sopor [Recovering/Resolving]
  - Intentional self-injury [Unknown]
  - Drug abuse [Recovering/Resolving]

NARRATIVE: CASE EVENT DATE: 20230409
